FAERS Safety Report 6172407-6 (Version None)
Quarter: 2009Q2

REPORT INFORMATION
  Report Type: 
  Country: None (occurrence: None)
  Receive Date: 20090429
  Receipt Date: 20090424
  Transmission Date: 20091009
  Serious: Yes (Hospitalization)
  Sender: FDA-Public Use
  Company Number: US-BAYER-200919357GPV

PATIENT
  Age: 37 Year
  Sex: Female

DRUGS (1)
  1. ACETYLSALICYLIC ACID [Suspect]
     Indication: DRUG USE FOR UNKNOWN INDICATION
     Dosage: 150 STANDARD 5 GRAIN TABLETS
     Route: 048
     Dates: start: 19571001

REACTIONS (8)
  - AGITATION [None]
  - CONFUSIONAL STATE [None]
  - DEAFNESS [None]
  - DELIRIUM [None]
  - DEPRESSED LEVEL OF CONSCIOUSNESS [None]
  - THERAPEUTIC AGENT TOXICITY [None]
  - TINNITUS [None]
  - VOMITING [None]
